FAERS Safety Report 20001304 (Version 1)
Quarter: 2021Q4

REPORT INFORMATION
  Report Type: Spontaneous
  Country: US (occurrence: US)
  Receive Date: 20211027
  Receipt Date: 20211027
  Transmission Date: 20220303
  Serious: Yes (Hospitalization)
  Sender: FDA-Public Use
  Company Number: None

PATIENT
  Age: 62 Year
  Sex: Male
  Weight: 67.23 kg

DRUGS (18)
  1. DOSTARLIMAB [Suspect]
     Active Substance: DOSTARLIMAB
     Indication: Squamous cell carcinoma
     Dosage: ?          OTHER FREQUENCY:Q6W;
     Route: 041
     Dates: start: 20210615
  2. NIRAPARIB [Suspect]
     Active Substance: NIRAPARIB
     Indication: Squamous cell carcinoma
     Route: 048
     Dates: start: 20210615
  3. METHYLPHENIDATE [Concomitant]
     Active Substance: METHYLPHENIDATE
     Dates: start: 20200603
  4. GABAPENTIN [Concomitant]
     Active Substance: GABAPENTIN
     Dates: start: 20190405
  5. DULOXETINE [Concomitant]
     Active Substance: DULOXETINE
     Dates: start: 20190508
  6. Carvdilol [Concomitant]
     Dates: start: 20200716
  7. FLUDROCORTISONE [Concomitant]
     Active Substance: FLUDROCORTISONE
     Dates: start: 20201110
  8. ASPIRIN [Concomitant]
     Active Substance: ASPIRIN
     Dates: start: 20210401
  9. Atorvistatin [Concomitant]
     Dates: start: 20210320
  10. MAGNESIUM OXIDE [Concomitant]
     Active Substance: MAGNESIUM OXIDE
     Dates: start: 20201001
  11. LEVOTHYROXINE [Concomitant]
     Active Substance: LEVOTHYROXINE
     Dates: start: 20190523
  12. SENNA [Concomitant]
     Active Substance: SENNA LEAF\SENNOSIDES\SENNOSIDES A AND B
     Dates: start: 20210421
  13. POTASSIUM CHLORIDE [Concomitant]
     Active Substance: POTASSIUM CHLORIDE
     Dates: start: 20201001
  14. OXYCODONE [Concomitant]
     Active Substance: OXYCODONE
     Dates: start: 20140210
  15. METHADONE [Concomitant]
     Active Substance: METHADONE HYDROCHLORIDE
     Dates: start: 20200921
  16. ONDANSETRON [Concomitant]
     Active Substance: ONDANSETRON
     Dates: start: 20210618
  17. KLOR-CON M20 [Concomitant]
     Active Substance: POTASSIUM CHLORIDE
     Dates: start: 20210628
  18. COMPAZINE [Concomitant]
     Active Substance: PROCHLORPERAZINE MALEATE
     Dates: start: 20210618

REACTIONS (1)
  - Syncope [None]

NARRATIVE: CASE EVENT DATE: 20211011
